FAERS Safety Report 4469302-7 (Version None)
Quarter: 2004Q4

REPORT INFORMATION
  Report Type: 
  Country: None (occurrence: None)
  Receive Date: 20041008
  Receipt Date: 20031014
  Transmission Date: 20050328
  Serious: No
  Sender: FDA-Public Use
  Company Number: US-BRISTOL-MYERS SQUIBB COMPANY-12411310

PATIENT

DRUGS (1)
  1. AVAPRO [Suspect]

REACTIONS (1)
  - PAIN IN EXTREMITY [None]
